FAERS Safety Report 19274904 (Version 1)
Quarter: 2021Q2

REPORT INFORMATION
  Report Type: Spontaneous
  Country: JP (occurrence: JP)
  Receive Date: 20210519
  Receipt Date: 20210519
  Transmission Date: 20210717
  Serious: Yes (Other)
  Sender: FDA-Public Use
  Company Number: JP-PFIZER INC-2021512626

PATIENT
  Sex: Male

DRUGS (1)
  1. CORTRIL [Suspect]
     Active Substance: HYDROCORTISONE
     Indication: ADRENOCORTICOTROPIC HORMONE DEFICIENCY
     Dosage: 2 DF, DAILY
     Route: 048

REACTIONS (1)
  - Spinal compression fracture [Unknown]
